FAERS Safety Report 13534213 (Version 1)
Quarter: 2017Q2

REPORT INFORMATION
  Report Type: Spontaneous
  Country: GB (occurrence: GB)
  Receive Date: 20170510
  Receipt Date: 20170510
  Transmission Date: 20170830
  Serious: Yes (Other)
  Sender: FDA-Public Use
  Company Number: GB-MYLANLABS-2017M1027734

PATIENT

DRUGS (22)
  1. CLOBETASONE BUTYRATE [Concomitant]
     Active Substance: CLOBETASONE BUTYRATE
     Dosage: APPLY 1-2 TIMES/DAY
     Dates: start: 20170315, end: 20170412
  2. ATORVASTATIN [Concomitant]
     Active Substance: ATORVASTATIN
     Dates: start: 20161212
  3. BECONASE AQ [Concomitant]
     Active Substance: BECLOMETHASONE DIPROPIONATE MONOHYDRATE
     Dates: start: 20161014
  4. KETOCONAZOLE. [Concomitant]
     Active Substance: KETOCONAZOLE
     Dates: start: 20161014
  5. ACICLOVIR [Concomitant]
     Active Substance: ACYCLOVIR
     Dates: start: 20170228, end: 20170328
  6. BISOPROLOL [Concomitant]
     Active Substance: BISOPROLOL
     Dates: start: 20161014
  7. FEXOFENADINE [Concomitant]
     Active Substance: FEXOFENADINE\FEXOFENADINE HYDROCHLORIDE
     Dates: start: 20170404
  8. SALIVIX [Concomitant]
     Dosage: USE AS DIRECTED
     Dates: start: 20170124
  9. E45 [Concomitant]
     Active Substance: LANOLIN\LIGHT MINERAL OIL\PARAFFIN
     Dosage: AD
     Dates: start: 20161014
  10. FLUCLOXACILLIN [Concomitant]
     Active Substance: FLUCLOXACILLIN
     Dates: start: 20170315, end: 20170322
  11. MEBEVERINE HYDROCHLORIDE [Concomitant]
     Active Substance: MEBEVERINE HYDROCHLORIDE
     Dosage: 20MINS BEFORE FOOD AS NEEDED
     Dates: start: 20170419
  12. DOXYCYCLINE. [Suspect]
     Active Substance: DOXYCYCLINE
     Dates: start: 20170404
  13. HYLO-FORTE [Concomitant]
     Active Substance: HYALURONATE SODIUM
     Dates: start: 20170419
  14. MICONAZOLE. [Concomitant]
     Active Substance: MICONAZOLE
     Dates: start: 20170315, end: 20170320
  15. NYSTAN [Concomitant]
     Active Substance: NYSTATIN
     Dates: start: 20170407, end: 20170414
  16. CHLORAMPHENICOL [Concomitant]
     Active Substance: CHLORAMPHENICOL
     Dosage: NOCTE
     Route: 050
     Dates: start: 20170419
  17. EPADERM [Concomitant]
     Active Substance: MINERAL OIL\PETROLATUM\WAX, EMULSIFYING
     Dosage: USE AS DIRECTED
     Dates: start: 20170315, end: 20170322
  18. PREDNISOLONE. [Concomitant]
     Active Substance: PREDNISOLONE
     Dates: start: 20170404, end: 20170409
  19. DIFFLAM [Concomitant]
     Active Substance: BENZYDAMINE HYDROCHLORIDE
     Dosage: AS DIRECTED
     Dates: start: 20161014
  20. HYPROMELLOSE [Concomitant]
     Active Substance: HYPROMELLOSES
     Dosage: USE AS DIRECTED  IN AFFECTED EYE(S)
     Route: 050
     Dates: start: 20170125, end: 20170419
  21. CETRABEN [Concomitant]
     Active Substance: PARAFFIN
     Dosage: USE AS DIRECTED
     Dates: start: 20170224, end: 20170324
  22. DIPROBASE [Concomitant]
     Active Substance: CHLOROCRESOL
     Dosage: AD
     Dates: start: 20161014

REACTIONS (1)
  - Dermatitis [Recovered/Resolved]

NARRATIVE: CASE EVENT DATE: 20170420
